FAERS Safety Report 8452012-9 (Version None)
Quarter: 2012Q2

REPORT INFORMATION
  Report Type: 
  Country: None (occurrence: None)
  Receive Date: 20120620
  Receipt Date: 20120611
  Transmission Date: 20120825
  Serious: Yes (Hospitalization)
  Sender: FDA-Public Use
  Company Number: IT-BRISTOL-MYERS SQUIBB COMPANY-15199706

PATIENT
  Age: 78 Year
  Sex: Female

DRUGS (3)
  1. COUMADIN [Suspect]
     Indication: ATRIAL FIBRILLATION
     Dosage: INTERRUPTED:05APR10,
     Route: 048
     Dates: start: 20090101
  2. ALDACTONE [Suspect]
     Indication: HYPERTENSION
     Dosage: FORMULATION:CAPS.
     Route: 048
     Dates: start: 20090101, end: 20100405
  3. ENALAPRIL MALEATE [Suspect]
     Indication: HYPERTENSION
     Route: 048
     Dates: start: 20090101, end: 20100405

REACTIONS (3)
  - HYPERKALAEMIA [None]
  - PETECHIAE [None]
  - INTERNATIONAL NORMALISED RATIO INCREASED [None]
